FAERS Safety Report 24796621 (Version 1)
Quarter: 2025Q1

REPORT INFORMATION
  Report Type: Spontaneous
  Country: US (occurrence: US)
  Receive Date: 20250101
  Receipt Date: 20250101
  Transmission Date: 20250409
  Serious: No
  Sender: DR REDDYS
  Company Number: US-DRL-USA-SPO/USA/24/0019274

PATIENT
  Age: 57 Year
  Sex: Female

DRUGS (1)
  1. NICOTINE TRANSDERMAL SYSTEM [Suspect]
     Active Substance: NICOTINE
     Indication: Smoking cessation therapy
     Route: 062
     Dates: start: 20241221

REACTIONS (5)
  - Pain in extremity [Unknown]
  - Skin burning sensation [Unknown]
  - Contusion [Unknown]
  - Application site pain [Unknown]
  - Drug ineffective [Unknown]
